FAERS Safety Report 21990988 (Version 1)
Quarter: 2023Q1

REPORT INFORMATION
  Report Type: Spontaneous
  Country: US (occurrence: US)
  Receive Date: 20230214
  Receipt Date: 20230214
  Transmission Date: 20230417
  Serious: No
  Sender: FDA-Public Use
  Company Number: US-SA-SAC20230213000113

PATIENT
  Age: 56 Year
  Sex: Female
  Weight: 72 kg

DRUGS (8)
  1. DUPIXENT [Suspect]
     Active Substance: DUPILUMAB
     Indication: Dermatitis atopic
     Dosage: 300 MG, QOW
     Route: 058
     Dates: start: 20210622
  2. METHOTREXATE [Concomitant]
     Active Substance: METHOTREXATE
  3. ZINC [Concomitant]
     Active Substance: ZINC
  4. ASCORBIC ACID [Concomitant]
     Active Substance: ASCORBIC ACID
  5. BIOTIN [Concomitant]
     Active Substance: BIOTIN
  6. CHOLECALCIFEROL\FISH OIL [Concomitant]
     Active Substance: CHOLECALCIFEROL\FISH OIL
  7. SUPER B COMPLEX [VITAMIN B COMPLEX] [Concomitant]
  8. GARLIC [Concomitant]
     Active Substance: GARLIC

REACTIONS (2)
  - Pruritus [Unknown]
  - Product dose omission issue [Unknown]
